FAERS Safety Report 9596050 (Version 2)
Quarter: 2013Q4

REPORT INFORMATION
  Report Type: Report from Study
  Country: DE (occurrence: DE)
  Receive Date: 20131004
  Receipt Date: 20131031
  Transmission Date: 20140711
  Serious: Yes (Hospitalization)
  Sender: FDA-Public Use
  Company Number: DE-CELGENEUS-062-21880-13093468

PATIENT
  Age: 55 Year
  Sex: Male
  Weight: 71 kg

DRUGS (3)
  1. BORTEZOMIB [Suspect]
     Indication: PLASMA CELL MYELOMA
     Dosage: 2.47 MILLIGRAM
     Route: 041
     Dates: start: 20110318
  2. PAMIDRONIC ACID [Suspect]
     Indication: PLASMA CELL MYELOMA
     Dosage: 90 MILLIGRAM
     Route: 065
     Dates: start: 20130911, end: 20130911
  3. REVLIMID [Suspect]
     Indication: PLASMA CELL MYELOMA
     Dosage: 10 MILLIGRAM
     Route: 048
     Dates: start: 20111221

REACTIONS (1)
  - Rhabdomyolysis [Recovered/Resolved]
